FAERS Safety Report 16931545 (Version 1)
Quarter: 2019Q4

REPORT INFORMATION
  Report Type: Spontaneous
  Country: US (occurrence: US)
  Receive Date: 20191017
  Receipt Date: 20191017
  Transmission Date: 20200122
  Serious: Yes (Death, Other)
  Sender: FDA-Public Use
  Company Number: NVSC2019US001791

PATIENT
  Age: 28 Year
  Sex: Male

DRUGS (2)
  1. BUPROPION. [Suspect]
     Active Substance: BUPROPION
     Indication: PRODUCT USED FOR UNKNOWN INDICATION
     Dosage: 300 MG, 30 TABLETS
     Route: 065
  2. DEPAKOTE [Concomitant]
     Active Substance: DIVALPROEX SODIUM
     Indication: PRODUCT USED FOR UNKNOWN INDICATION
     Route: 065

REACTIONS (9)
  - Cardiac arrest [Fatal]
  - Toxicity to various agents [Fatal]
  - Status epilepticus [Fatal]
  - Electrocardiogram QRS complex prolonged [Fatal]
  - Neurological decompensation [Fatal]
  - Suicide attempt [Unknown]
  - Lethargy [Fatal]
  - Electrocardiogram QT prolonged [Fatal]
  - Cardiac disorder [Fatal]
